FAERS Safety Report 16973340 (Version 1)
Quarter: 2019Q4

REPORT INFORMATION
  Report Type: Spontaneous
  Country: FR (occurrence: FR)
  Receive Date: 20191030
  Receipt Date: 20191030
  Transmission Date: 20200122
  Serious: Yes (Death)
  Sender: FDA-Public Use
  Company Number: FR-TEVA-2019-FR-1129294

PATIENT
  Age: 74 Year
  Sex: Female

DRUGS (2)
  1. OXALIPLATINE [Suspect]
     Active Substance: OXALIPLATIN
     Indication: COLON CANCER
     Dosage: NP
     Route: 042
     Dates: start: 20171208, end: 20171208
  2. FLUOROURACILE [Suspect]
     Active Substance: FLUOROURACIL
     Indication: COLON CANCER
     Dosage: NP
     Route: 042
     Dates: start: 20171208, end: 20171208

REACTIONS (1)
  - Haemorrhagic stroke [Fatal]

NARRATIVE: CASE EVENT DATE: 20171212
